FAERS Safety Report 17584173 (Version 1)
Quarter: 2020Q1

REPORT INFORMATION
  Report Type: Spontaneous
  Country: US (occurrence: US)
  Receive Date: 20200323
  Receipt Date: 20200323
  Transmission Date: 20200409
  Serious: No
  Sender: FDA-Public Use
  Company Number: None

PATIENT
  Age: 21 Year
  Sex: Female

DRUGS (2)
  1. SYMDEKO [Suspect]
     Active Substance: IVACAFTOR\TEZACAFTOR
     Route: 055
  2. TOBI PODHALER [Concomitant]
     Active Substance: TOBRAMYCIN

REACTIONS (3)
  - Food allergy [None]
  - Migraine [None]
  - Constipation [None]

NARRATIVE: CASE EVENT DATE: 20191115
